FAERS Safety Report 9432404 (Version 1)
Quarter: 2013Q3

REPORT INFORMATION
  Report Type: Spontaneous
  Country: US (occurrence: None)
  Receive Date: 20130730
  Receipt Date: 20130730
  Transmission Date: 20140515
  Serious: Yes (Disabling)
  Sender: FDA-Public Use
  Company Number: None

PATIENT
  Age: 61 Year
  Sex: Male
  Weight: 77.11 kg

DRUGS (1)
  1. FINASTERIDE [Suspect]
     Indication: PROSTATOMEGALY
     Dosage: 1 TAB DAILY 1 PER DAY MOUTH
     Route: 048
     Dates: start: 201112, end: 201211

REACTIONS (11)
  - Loss of libido [None]
  - Erectile dysfunction [None]
  - Penis disorder [None]
  - Sexual dysfunction [None]
  - Emotional disorder [None]
  - Apathy [None]
  - Aggression [None]
  - Testicular pain [None]
  - Depression [None]
  - Fatigue [None]
  - Sleep disorder [None]
